FAERS Safety Report 6435928-4 (Version None)
Quarter: 2009Q4

REPORT INFORMATION
  Report Type: 
  Country: None (occurrence: None)
  Receive Date: 20091111
  Receipt Date: 20091030
  Transmission Date: 20100525
  Serious: Yes (Other)
  Sender: FDA-Public Use
  Company Number: IE-WYE-H11993309

PATIENT
  Age: 38 Year
  Sex: Female

DRUGS (4)
  1. PROTIUM [Suspect]
     Dosage: 40 MG, FREQUENCY UNSPECIFIED
     Route: 048
     Dates: start: 20091002, end: 20091008
  2. AMOXICILLIN [Concomitant]
     Route: 048
     Dates: start: 20091002, end: 20091008
  3. ACETAMINOPHEN [Concomitant]
     Dosage: DOSE AND FREQUENCY UNSPECIFIED
     Route: 048
  4. CLARITHROMYCIN [Concomitant]
     Route: 048
     Dates: start: 20091002, end: 20091008

REACTIONS (4)
  - AGGRESSION [None]
  - CONFUSIONAL STATE [None]
  - DEPRESSION [None]
  - HALLUCINATION [None]
